FAERS Safety Report 14680107 (Version 1)
Quarter: 2018Q1

REPORT INFORMATION
  Report Type: Spontaneous
  Country: US (occurrence: US)
  Receive Date: 20180326
  Receipt Date: 20180326
  Transmission Date: 20180509
  Serious: Yes (Death, Hospitalization, Other)
  Sender: FDA-Public Use
  Company Number: US-BAYER-2018-054532

PATIENT
  Sex: Male

DRUGS (1)
  1. XOFIGO [Suspect]
     Active Substance: RADIUM RA-223 DICHLORIDE
     Dosage: ONE DOSE ONLY
     Route: 042

REACTIONS (5)
  - Death [Fatal]
  - Mental impairment [None]
  - Loss of consciousness [None]
  - Somnolence [None]
  - Bone marrow failure [Recovered/Resolved]
